FAERS Safety Report 6277837-X (Version None)
Quarter: 2009Q3

REPORT INFORMATION
  Report Type: 
  Country: None (occurrence: None)
  Receive Date: 20090722
  Receipt Date: 20090714
  Transmission Date: 20100115
  Serious: Yes (Hospitalization)
  Sender: FDA-Public Use
  Company Number: US-KINGPHARMUSA00001-K200900828

PATIENT
  Age: 82 Year
  Sex: Female

DRUGS (19)
  1. ALTACE [Suspect]
     Indication: CARDIOVASCULAR EVENT PROPHYLAXIS
     Dosage: UNK, QD
     Route: 048
     Dates: start: 20090304, end: 20090313
  2. TEGRETOL [Suspect]
     Indication: NEUROPATHY PERIPHERAL
     Dosage: UNK
     Route: 048
     Dates: start: 20090306, end: 20090318
  3. KEPPRA [Suspect]
     Indication: EPILEPSY
     Dosage: UNK
     Route: 042
     Dates: start: 20090313, end: 20090412
  4. KARDEGIC [Concomitant]
     Indication: ISCHAEMIC HEART DISEASE PROPHYLAXIS
     Dosage: 160 MG, UNK
     Route: 048
     Dates: start: 20090225, end: 20090218
  5. LOVENOX [Concomitant]
     Indication: THROMBOSIS PROPHYLAXIS
     Dosage: UNK
     Route: 058
     Dates: start: 20090305, end: 20090412
  6. NEXIUM [Concomitant]
     Indication: GASTROOESOPHAGEAL REFLUX DISEASE
     Dosage: UNK
     Route: 042
     Dates: start: 20090301, end: 20090412
  7. ASPIRIN [Concomitant]
     Indication: ISCHAEMIC HEART DISEASE PROPHYLAXIS
     Dosage: 250 MG, UNK
     Route: 042
     Dates: start: 20090302, end: 20090412
  8. PLITICAN [Concomitant]
     Indication: NAUSEA
     Dosage: UNK
     Route: 042
     Dates: start: 20090303, end: 20090412
  9. OLICLINOMEL [Concomitant]
     Indication: PARENTERAL NUTRITION
     Dosage: UNK
     Route: 042
     Dates: start: 20090303
  10. TAHOR [Concomitant]
     Indication: HYPERCHOLESTEROLAEMIA
     Dosage: 80 MG, UNK
     Route: 048
     Dates: start: 20090227, end: 20090313
  11. PERIDYS [Concomitant]
     Indication: NAUSEA
     Dosage: 3 UG/KG, UNK
     Route: 048
     Dates: start: 20090304, end: 20090316
  12. AMLOR [Concomitant]
     Indication: HYPERTENSION
     Dosage: 10 MG, UNK
     Route: 048
     Dates: start: 20090304, end: 20090313
  13. MODAFINIL [Concomitant]
     Indication: NARCOLEPSY
     Dosage: UNK
     Route: 048
     Dates: start: 20090306, end: 20090313
  14. AUGMENTIN [Concomitant]
     Dosage: UNK
     Route: 042
     Dates: start: 20090309, end: 20090327
  15. ANAFRANIL [Concomitant]
     Indication: DEPRESSION
     Dosage: UNK
     Route: 042
     Dates: start: 20090317, end: 20090420
  16. SANDOSTATIN [Concomitant]
     Dosage: UNK
     Route: 043
     Dates: start: 20090306, end: 20090318
  17. CITALOPRAM HYDROBROMIDE [Concomitant]
     Indication: DEPRESSION
     Dosage: UNK
     Route: 042
     Dates: end: 20090412
  18. NEOSTIGMINE [Concomitant]
     Indication: MUSCULAR WEAKNESS
     Dosage: UNK
     Route: 042
     Dates: end: 20090412
  19. NICARDIPINE HCL [Concomitant]
     Indication: HYPERTENSION
     Dosage: UNK
     Route: 042
     Dates: end: 20090420

REACTIONS (3)
  - HYPOVITAMINOSIS [None]
  - PANCYTOPENIA [None]
  - VITAMIN B12 DEFICIENCY [None]
